FAERS Safety Report 17635702 (Version 6)
Quarter: 2020Q3

REPORT INFORMATION
  Report Type: Report from Study
  Country: None (occurrence: ES)
  Receive Date: 20200407
  Receipt Date: 20200827
  Transmission Date: 20201102
  Serious: Yes (Hospitalization, Other)
  Sender: FDA-Public Use
  Company Number: ES-ABBVIE-20K-144-3353448-00

PATIENT
  Age: 71 Year
  Sex: Male
  Weight: 69.9 kg

DRUGS (5)
  1. QUETIAPINA [Concomitant]
     Active Substance: QUETIAPINE
     Indication: PRODUCT USED FOR UNKNOWN INDICATION
     Dosage: 25, ONE IN EVENING
     Route: 048
  2. DUODOPA [Suspect]
     Active Substance: CARBIDOPA\LEVODOPA
     Dosage: LOWER OF CONTINUOUS DOSE TO 4.8 ML / H
     Route: 050
     Dates: start: 202008
  3. SINEMET [Concomitant]
     Active Substance: CARBIDOPA\LEVODOPA
     Indication: PARKINSON^S DISEASE
     Dosage: 200, ONE IN EVENING
     Route: 048
  4. DUODOPA [Suspect]
     Active Substance: CARBIDOPA\LEVODOPA
     Indication: PARKINSON^S DISEASE
     Dosage: 4.8ML/G
     Route: 050
     Dates: start: 20131030, end: 202008
  5. CAPECITABINA [Suspect]
     Active Substance: CAPECITABINE
     Indication: COLON CANCER
     Dosage: 4+3, FIFTEEN DAYS AND RESTS FOR A WEEK
     Route: 048
     Dates: start: 202004

REACTIONS (4)
  - Colon neoplasm [Recovering/Resolving]
  - Orthostatic hypotension [Recovered/Resolved]
  - Stoma site hypergranulation [Not Recovered/Not Resolved]
  - Stoma site erythema [Not Recovered/Not Resolved]

NARRATIVE: CASE EVENT DATE: 202002
